FAERS Safety Report 9500689 (Version 1)
Quarter: 2013Q3

REPORT INFORMATION
  Report Type: Spontaneous
  Country: FR (occurrence: FR)
  Receive Date: 20130905
  Receipt Date: 20130905
  Transmission Date: 20140515
  Serious: Yes (Death)
  Sender: FDA-Public Use
  Company Number: FR-PFIZER INC-2013252049

PATIENT
  Age: 80 Year
  Sex: Male

DRUGS (1)
  1. TORISEL [Suspect]
     Indication: MANTLE CELL LYMPHOMA
     Dosage: 75 MG, WEEKLY
     Route: 042
     Dates: start: 20100518, end: 20100824

REACTIONS (1)
  - Death [Fatal]
